FAERS Safety Report 5717526-0 (Version None)
Quarter: 2008Q2

REPORT INFORMATION
  Report Type: 
  Country: None (occurrence: None)
  Receive Date: 20080425
  Receipt Date: 20080412
  Transmission Date: 20081010
  Serious: Yes (Disabling, Other)
  Sender: FDA-Public Use
  Company Number: JP-BRISTOL-MYERS SQUIBB COMPANY-14147615

PATIENT
  Age: 93 Year
  Sex: Female

DRUGS (14)
  1. CIBENOL [Suspect]
     Indication: ARRHYTHMIA
     Route: 048
     Dates: start: 20041217, end: 20070325
  2. GATIFLOXACIN [Suspect]
     Route: 048
  3. ADALAT [Concomitant]
     Indication: HYPERTENSION
     Route: 048
     Dates: start: 20050203, end: 20070325
  4. FAMOTIDINE [Concomitant]
     Indication: PROPHYLAXIS AGAINST GASTROINTESTINAL ULCER
     Route: 048
     Dates: start: 20041217, end: 20070325
  5. DEPAS [Concomitant]
     Indication: INSOMNIA
     Route: 048
     Dates: start: 20041217, end: 20070325
  6. NIVADIL [Concomitant]
     Indication: HYPERTENSION
     Route: 048
     Dates: start: 20041222, end: 20070325
  7. BUFFERIN [Concomitant]
     Indication: COAGULOPATHY
     Route: 048
     Dates: start: 20041225, end: 20070321
  8. LASIX [Concomitant]
     Indication: POLYURIA
     Route: 048
     Dates: start: 20050317, end: 20070325
  9. LANIRAPID [Concomitant]
     Indication: ATRIAL FIBRILLATION
     Route: 048
     Dates: start: 20041217, end: 20070325
  10. LANIRAPID [Concomitant]
     Indication: HYPERTENSION
     Route: 048
     Dates: start: 20041217, end: 20070325
  11. MERISLON [Concomitant]
     Indication: DIZZINESS
     Route: 048
     Dates: start: 20041217, end: 20070325
  12. GLAKAY [Concomitant]
     Indication: OSTEOPOROSIS
     Route: 048
     Dates: start: 20050127, end: 20070325
  13. SOLON [Concomitant]
     Indication: ABDOMINAL PAIN UPPER
     Route: 048
     Dates: start: 20050127, end: 20070325
  14. OXYBUTYNIN HCL [Concomitant]
     Indication: POLLAKIURIA
     Route: 048
     Dates: start: 20050127, end: 20070325

REACTIONS (2)
  - HYPOGLYCAEMIA [None]
  - HYPOGLYCAEMIC ENCEPHALOPATHY [None]
